FAERS Safety Report 19898833 (Version 1)
Quarter: 2021Q3

REPORT INFORMATION
  Report Type: Spontaneous
  Country: US (occurrence: US)
  Receive Date: 20210930
  Receipt Date: 20210930
  Transmission Date: 20211014
  Serious: No
  Sender: FDA-Public Use
  Company Number: US-BION-009967

PATIENT
  Sex: Female

DRUGS (1)
  1. LOPERAMIDE 2MG 12 SOFT GELS [Suspect]
     Active Substance: LOPERAMIDE HYDROCHLORIDE
     Indication: DIARRHOEA
     Dosage: STRENGTH: 2 MG?ON 20?JUL?2021:2 AS 1ST DOSE, 21?JUL?2021: 1 TAB TID, 22?JUL?2021: MORNING 1 TAB
     Dates: start: 20210720

REACTIONS (2)
  - Malaise [Unknown]
  - Drug ineffective [Not Recovered/Not Resolved]
